FAERS Safety Report 12994611 (Version 1)
Quarter: 2016Q4

REPORT INFORMATION
  Report Type: Spontaneous
  Country: US (occurrence: US)
  Receive Date: 20161202
  Receipt Date: 20161202
  Transmission Date: 20170207
  Serious: Yes (Hospitalization)
  Sender: FDA-Public Use
  Company Number: US-009507513-1611USA012341

PATIENT
  Age: 72 Year
  Sex: Male

DRUGS (10)
  1. SINEMET [Suspect]
     Active Substance: CARBIDOPA\LEVODOPA
     Indication: PARKINSON^S DISEASE
     Dosage: 10 MG/100 MG, 5 TIMES PER DAY
     Route: 048
  2. JEVITY [Interacting]
     Active Substance: DIETARY SUPPLEMENT
     Indication: ENTERAL NUTRITION
     Dosage: NCREMENTAL INCREASES OF 50 ML WITH EACH FEED TO A FOAL OF 240 ML 5 TIMES A DAY, ROUTE: ENTERAL
  3. AZITHROMYCIN ANHYDROUS. [Concomitant]
     Active Substance: AZITHROMYCIN ANHYDROUS
     Indication: PNEUMONIA
     Dosage: UNK
  4. PIPERACILLIN AND TAZOBACTAM [Concomitant]
     Active Substance: PIPERACILLIN SODIUM\TAZOBACTAM SODIUM
     Indication: PNEUMONIA
     Dosage: UNK
  5. QUETIAPINE FUMARATE. [Concomitant]
     Active Substance: QUETIAPINE FUMARATE
     Dosage: 50 MG, AT BEDTIME
     Route: 048
  6. CEFEPIME [Concomitant]
     Active Substance: CEFEPIME HYDROCHLORIDE
     Indication: PNEUMONIA
     Dosage: UNK
  7. TWOCAL HN [Interacting]
     Active Substance: DIETARY SUPPLEMENT
     Indication: ENTERAL NUTRITION
     Dosage: 85 ML/H, ADMINISTERED CONTINUOUSLY FROM 21:00 TO 07:00
  8. VALPROIC ACID. [Concomitant]
     Active Substance: VALPROIC ACID
     Dosage: 125 MG, TID
     Route: 048
  9. SINEMET [Interacting]
     Active Substance: CARBIDOPA\LEVODOPA
     Dosage: 20 MG/200 MG AT 00:00 WHILE CONTINUING THE 10 MG/100 MG DOSE FOR OTHER ADMINISTRATION TIMES
     Route: 048
  10. VANCOMYCIN [Concomitant]
     Active Substance: VANCOMYCIN
     Indication: PNEUMONIA
     Dosage: UNK

REACTIONS (5)
  - Food interaction [Recovered/Resolved]
  - Pneumonia [None]
  - Pyrexia [Recovered/Resolved]
  - Drug interaction [Recovered/Resolved]
  - Drug withdrawal syndrome [Recovered/Resolved]
